FAERS Safety Report 25272801 (Version 1)
Quarter: 2025Q2

REPORT INFORMATION
  Report Type: Spontaneous
  Country: US (occurrence: US)
  Receive Date: 20250506
  Receipt Date: 20250506
  Transmission Date: 20250716
  Serious: No
  Sender: COSETTE PHARMACEUTICALS INC
  Company Number: US-COSETTE-CP2025US000420

PATIENT
  Age: 67 Year
  Sex: Male
  Weight: 226 kg

DRUGS (1)
  1. BETAMETHASONE DIPROPIONATE [Suspect]
     Active Substance: BETAMETHASONE DIPROPIONATE
     Indication: Ulcer
     Route: 061

REACTIONS (2)
  - Discomfort [Unknown]
  - Burning sensation [Unknown]
